FAERS Safety Report 11156518 (Version 1)
Quarter: 2015Q2

REPORT INFORMATION
  Report Type: Spontaneous
  Country: FR (occurrence: FR)
  Receive Date: 20150602
  Receipt Date: 20150602
  Transmission Date: 20150821
  Serious: Yes (Hospitalization)
  Sender: FDA-Public Use
  Company Number: PHHY2015FR065533

PATIENT
  Age: 28 Year
  Sex: Female

DRUGS (4)
  1. GILENYA [Suspect]
     Active Substance: FINGOLIMOD HYDROCHLORIDE
     Indication: MULTIPLE SCLEROSIS
     Dosage: 0.5 MG, QD
     Route: 048
     Dates: start: 20131005
  2. PSYLIA [Suspect]
     Active Substance: PLANTAGO AFRA SEED
     Indication: CONSTIPATION
     Dosage: 3.6 G, BID (EFFERESCENT POWDER)
     Route: 048
     Dates: start: 201412, end: 201501
  3. RIVOTRIL [Concomitant]
     Active Substance: CLONAZEPAM
     Indication: NEURALGIA
     Dosage: 0.4 MG, TID
     Route: 048
     Dates: start: 2004
  4. LEVOTHYROX [Concomitant]
     Active Substance: LEVOTHYROXINE
     Indication: HYPOTHYROIDISM
     Dosage: 50 UG, QD
     Route: 048
     Dates: start: 2005

REACTIONS (2)
  - Inflammation [Recovered/Resolved]
  - Abdominal pain [Not Recovered/Not Resolved]

NARRATIVE: CASE EVENT DATE: 20150103
